FAERS Safety Report 6448764-X (Version None)
Quarter: 2009Q4

REPORT INFORMATION
  Report Type: 
  Country: None (occurrence: None)
  Receive Date: 20091120
  Receipt Date: 20090827
  Transmission Date: 20100525
  Serious: Yes (Other)
  Sender: FDA-Public Use
  Company Number: CH-KINGPHARMUSA00001-K200901061

PATIENT
  Sex: Male

DRUGS (1)
  1. FLECTOR [Suspect]
     Indication: SCIATICA
     Dosage: UNK PATCH, UNK
     Route: 061

REACTIONS (1)
  - GASTROINTESTINAL HAEMORRHAGE [None]
